FAERS Safety Report 5287787-3 (Version None)
Quarter: 2007Q2

REPORT INFORMATION
  Report Type: 
  Country: None (occurrence: None)
  Receive Date: 20070405
  Receipt Date: 20070321
  Transmission Date: 20071010
  Serious: Yes (Other)
  Sender: FDA-Public Use
  Company Number: PHBS2007DK05185

PATIENT
  Age: 79 Year
  Sex: Male
  Weight: 73 kg

DRUGS (9)
  1. ZOMETA [Suspect]
     Indication: MULTIPLE MYELOMA
     Dosage: 4 MG INFUSION EVERY FOURTH WEEK
     Route: 042
     Dates: start: 20050803, end: 20070105
  2. THALIDOMIDE [Concomitant]
     Dates: start: 20060123
  3. PREDNISOLONE [Concomitant]
     Dosage: UNK, UNK
     Dates: start: 20060123
  4. MAGNYL [Concomitant]
     Dates: start: 20060123
  5. OXYCONTIN [Concomitant]
     Dates: start: 20050801
  6. PINEX /DEN/ [Concomitant]
     Dates: start: 20050801
  7. FURIX [Concomitant]
     Dates: start: 20050801
  8. OMNIKALK WITH D-VIT [Concomitant]
     Dates: start: 20050803
  9. UNIKALK WITH D-VIT [Concomitant]
     Dates: start: 20050803

REACTIONS (4)
  - IMPAIRED HEALING [None]
  - JAW DISORDER [None]
  - OSTEONECROSIS [None]
  - TOOTH EXTRACTION [None]
